FAERS Safety Report 11135555 (Version 1)
Quarter: 2015Q2

REPORT INFORMATION
  Report Type: Spontaneous
  Country: US (occurrence: None)
  Receive Date: 20150522
  Receipt Date: 20150522
  Transmission Date: 20150821
  Serious: Yes (Hospitalization)
  Sender: FDA-Public Use
  Company Number: None

PATIENT
  Age: 84 Year
  Sex: Male
  Weight: 93.9 kg

DRUGS (1)
  1. RIVAROXABAN 20MG [Suspect]
     Active Substance: RIVAROXABAN
     Indication: ATRIAL FIBRILLATION
     Route: 048
     Dates: start: 20150505, end: 20150512

REACTIONS (3)
  - Haemorrhagic anaemia [None]
  - Pneumonia [None]
  - Small intestinal haemorrhage [None]

NARRATIVE: CASE EVENT DATE: 20150513
